APPROVED DRUG PRODUCT: AMITIZA
Active Ingredient: LUBIPROSTONE
Strength: 8MCG
Dosage Form/Route: CAPSULE;ORAL
Application: N021908 | Product #002 | TE Code: AB
Applicant: SUCAMPO PHARMA AMERICAS LLC
Approved: Apr 29, 2008 | RLD: Yes | RS: No | Type: RX

PATENTS:
Patent 8779187 | Expires: Jan 23, 2027
Patent 8026393 | Expires: Oct 25, 2027
Patent 8338639 | Expires: Jan 23, 2027